FAERS Safety Report 10221890 (Version 1)
Quarter: 2014Q2

REPORT INFORMATION
  Report Type: Spontaneous
  Country: US (occurrence: US)
  Receive Date: 20140606
  Receipt Date: 20140606
  Transmission Date: 20141212
  Serious: No
  Sender: FDA-Public Use
  Company Number: US-BIOMARINAP-US-2013-102028

PATIENT
  Age: 3 Year
  Sex: Male

DRUGS (5)
  1. NAGLAZYME [Suspect]
     Indication: MUCOPOLYSACCHARIDOSIS VI
     Dosage: 1 MG/KG, QW
     Route: 041
  2. DIPHENHYDRAMINE [Concomitant]
     Indication: PREMEDICATION
     Dosage: 1 MG/KG, UNK
  3. DIPHENHYDRAMINE [Concomitant]
     Dosage: 1.25 UNK, UNK
     Route: 042
  4. PREDNISOLONE [Concomitant]
     Indication: PREMEDICATION
     Dosage: 2 MG/KG, UNK
     Route: 048
  5. METHYLPREDNISOLONE [Concomitant]
     Indication: PREMEDICATION
     Dosage: 1 MG/KG, UNK
     Route: 042

REACTIONS (8)
  - Infusion related reaction [Recovered/Resolved]
  - Urticaria [Recovered/Resolved]
  - Eyelid oedema [Recovered/Resolved]
  - Lip swelling [Recovered/Resolved]
  - Stridor [Recovered/Resolved]
  - Oxygen saturation decreased [Recovered/Resolved]
  - Agitation [Recovered/Resolved]
  - Mitral valve disease mixed [Recovered/Resolved]
